FAERS Safety Report 16052718 (Version 1)
Quarter: 2019Q1

REPORT INFORMATION
  Report Type: Spontaneous
  Country: US (occurrence: US)
  Receive Date: 20190308
  Receipt Date: 20190308
  Transmission Date: 20190418
  Serious: Yes (Death, Hospitalization)
  Sender: FDA-Public Use
  Company Number: US-PFIZER INC-2597898

PATIENT
  Age: 80 Year
  Sex: Male

DRUGS (4)
  1. OXYGEN. [Suspect]
     Active Substance: OXYGEN
     Dosage: NOT REPORTED
     Route: 045
  2. OXYGEN. [Suspect]
     Active Substance: OXYGEN
     Indication: DYSPNOEA
     Dosage: 3 L, UNK
     Route: 045
  3. AMIODARONE HCL [Suspect]
     Active Substance: AMIODARONE HYDROCHLORIDE
     Indication: ATRIAL FIBRILLATION
     Dosage: NOT REOPORTED
     Route: 042
  4. AMIODARONE [Suspect]
     Active Substance: AMIODARONE
     Indication: ATRIAL FIBRILLATION
     Dosage: 1.2 G, IN 3 DIVIDED DOSES
     Route: 048

REACTIONS (1)
  - Pulmonary toxicity [Fatal]
